FAERS Safety Report 17153003 (Version 1)
Quarter: 2019Q4

REPORT INFORMATION
  Report Type: Report from Study
  Country: US (occurrence: US)
  Receive Date: 20191213
  Receipt Date: 20191213
  Transmission Date: 20200122
  Serious: Yes (Death, Hospitalization, Other)
  Sender: FDA-Public Use
  Company Number: US-GILEAD-2019-0442559

PATIENT
  Age: 55 Year
  Sex: Male
  Weight: 94.8 kg

DRUGS (8)
  1. SULFAMETHOXAZOLE AND TRIMETHOPRIM [Concomitant]
     Active Substance: SULFAMETHOXAZOLE\TRIMETHOPRIM
     Dosage: 800-160 MG
     Route: 048
     Dates: start: 20190228, end: 20190529
  2. HYDROCODONE;PARACETAMOL [Concomitant]
     Dosage: 10-325 MG
     Route: 048
     Dates: start: 20190113, end: 20190515
  3. FLUCONAZOLE. [Concomitant]
     Active Substance: FLUCONAZOLE
     Dosage: 200 MG, PRN
     Route: 048
     Dates: start: 20190226, end: 20190527
  4. AXICABTAGENE CILOLEUCEL [Suspect]
     Active Substance: AXICABTAGENE CILOLEUCEL
     Indication: B-CELL UNCLASSIFIABLE LYMPHOMA HIGH GRADE
     Dosage: UNK
     Route: 065
     Dates: start: 20190520
  5. ATENOLOL. [Concomitant]
     Active Substance: ATENOLOL
     Dosage: 25 MG, QD
     Route: 048
     Dates: start: 20190111, end: 20190520
  6. OXYBUTYNIN. [Concomitant]
     Active Substance: OXYBUTYNIN CHLORIDE
     Dosage: 5 MG, TID
     Route: 048
     Dates: start: 20190213, end: 20190508
  7. PROCHLORPERAZINE. [Concomitant]
     Active Substance: PROCHLORPERAZINE
     Dosage: 10 MG, PRN
     Route: 048
     Dates: start: 20190226, end: 20190529
  8. LEVOFLOXACIN. [Concomitant]
     Active Substance: LEVOFLOXACIN
     Dosage: 500 MG, PRN
     Route: 048
     Dates: start: 20190212, end: 20190528

REACTIONS (9)
  - B-cell lymphoma refractory [Fatal]
  - Cytokine release syndrome [Not Recovered/Not Resolved]
  - Lethargy [Not Recovered/Not Resolved]
  - Systemic inflammatory response syndrome [Not Recovered/Not Resolved]
  - Metabolic acidosis [Not Recovered/Not Resolved]
  - Neurotoxicity [Not Recovered/Not Resolved]
  - Multiple organ dysfunction syndrome [Not Recovered/Not Resolved]
  - Renal failure [Not Recovered/Not Resolved]
  - Distributive shock [Not Recovered/Not Resolved]

NARRATIVE: CASE EVENT DATE: 201905
